FAERS Safety Report 4351311-X (Version None)
Quarter: 2004Q2

REPORT INFORMATION
  Report Type: 
  Country: None (occurrence: None)
  Receive Date: 20040428
  Receipt Date: 20040416
  Transmission Date: 20050107
  Serious: Yes (Other)
  Sender: FDA-Public Use
  Company Number: US-JNJFOC-20030906268

PATIENT
  Age: 50 Year
  Sex: Female
  Weight: 98.2038 kg

DRUGS (12)
  1. REMICADE [Suspect]
     Indication: CROHN'S DISEASE
     Dosage: 400 MG, INTRAVENOUS, 500 MG, INTRAVENOUS
     Route: 042
     Dates: start: 20030507
  2. REMICADE [Suspect]
     Indication: CROHN'S DISEASE
     Dosage: 400 MG, INTRAVENOUS, 500 MG, INTRAVENOUS
     Route: 042
     Dates: start: 20030521
  3. REMICADE [Suspect]
     Indication: CROHN'S DISEASE
     Dosage: 400 MG, INTRAVENOUS, 500 MG, INTRAVENOUS
     Route: 042
     Dates: start: 20030618
  4. MERCAPTOPURINE [Concomitant]
  5. SULFASALAZINE [Concomitant]
  6. CODEINE (CODEINE) [Concomitant]
  7. KLOR-CON [Concomitant]
  8. DIOVAN [Concomitant]
  9. IMODIUM [Concomitant]
  10. FOLIC ACID [Concomitant]
  11. VITAMIN B12 [Concomitant]
  12. METFORMIN (METFORMIN) [Concomitant]

REACTIONS (17)
  - ABDOMINAL HERNIA [None]
  - ANORECTAL DISORDER [None]
  - ATELECTASIS [None]
  - CONDITION AGGRAVATED [None]
  - CROHN'S DISEASE [None]
  - EPSTEIN-BARR VIRUS INFECTION [None]
  - GASTROINTESTINAL DISORDER [None]
  - HEPATIC STEATOSIS [None]
  - INFLAMMATION [None]
  - INTESTINAL MASS [None]
  - LYMPHADENOPATHY [None]
  - LYMPHOMA [None]
  - LYMPHOPROLIFERATIVE DISORDER [None]
  - METASTASIS [None]
  - NEOPLASM MALIGNANT [None]
  - PERITONEAL DISORDER [None]
  - RENAL CYST [None]
